FAERS Safety Report 8445471-9 (Version None)
Quarter: 2012Q2

REPORT INFORMATION
  Report Type: 
  Country: None (occurrence: None)
  Receive Date: 20120323
  Receipt Date: 20111026
  Transmission Date: 20120825
  Serious: Yes (Other)
  Sender: FDA-Public Use
  Company Number: 163-21880-11103387

PATIENT
  Age: 62 Year
  Sex: Male

DRUGS (2)
  1. BLOOD TRANSFUSION (BLOOD AND RELATED PRODUCTS) [Concomitant]
  2. REVLIMID [Suspect]
     Indication: MULTIPLE MYELOMA
     Dosage: 25 MG, DAILY X 3 WEEKS ON, 1 WEEK OFF, PO
     Route: 048
     Dates: start: 20110103

REACTIONS (1)
  - FULL BLOOD COUNT DECREASED [None]
